FAERS Safety Report 9690182 (Version 1)
Quarter: 2013Q4

REPORT INFORMATION
  Report Type: Spontaneous
  Country: US (occurrence: None)
  Receive Date: 20131114
  Receipt Date: 20131114
  Transmission Date: 20140711
  Serious: No
  Sender: FDA-Public Use
  Company Number: None

PATIENT
  Age: 33 Year
  Sex: Female
  Weight: 136.08 kg

DRUGS (1)
  1. ESCITALOPRAM 20MG [Suspect]
     Indication: ANXIETY
     Dosage: 1 PILL, ONCE DAILY, TAKEN BY MOUTH
     Route: 048
     Dates: start: 20120505, end: 20120625

REACTIONS (3)
  - Product substitution issue [None]
  - Anxiety [None]
  - Panic attack [None]
